FAERS Safety Report 23196348 (Version 1)
Quarter: 2023Q4

REPORT INFORMATION
  Report Type: Spontaneous
  Country: US (occurrence: US)
  Receive Date: 20231117
  Receipt Date: 20231117
  Transmission Date: 20240109
  Serious: No
  Sender: FDA-Public Use
  Company Number: US-JNJFOC-20231129168

PATIENT
  Age: 4 Decade
  Sex: Female

DRUGS (1)
  1. SPRAVATO [Suspect]
     Active Substance: ESKETAMINE
     Indication: Product used for unknown indication
     Route: 065

REACTIONS (1)
  - Amnesia [Unknown]
